FAERS Safety Report 16705406 (Version 1)
Quarter: 2019Q3

REPORT INFORMATION
  Report Type: Other
  Country: FR (occurrence: FR)
  Receive Date: 20190815
  Receipt Date: 20190815
  Transmission Date: 20191004
  Serious: Yes (Life-Threatening)
  Sender: FDA-Public Use
  Company Number: FR-DENTSPLY-2019SCDP000430

PATIENT
  Age: 52 Year
  Sex: Female
  Weight: 99 kg

DRUGS (8)
  1. PROPOFOL LIPURO [Suspect]
     Active Substance: PROPOFOL
     Indication: ADJUVANT THERAPY
     Dosage: 1 TOTAL
     Route: 042
     Dates: start: 20190429
  2. SALBUTAMOL [Concomitant]
     Active Substance: ALBUTEROL
     Indication: PRODUCT USED FOR UNKNOWN INDICATION
     Dosage: UNK
  3. DEXAMETHASONE. [Concomitant]
     Active Substance: DEXAMETHASONE
     Indication: PRODUCT USED FOR UNKNOWN INDICATION
     Dosage: UNK
  4. SUFENTANIL [Suspect]
     Active Substance: SUFENTANIL
     Indication: ADJUVANT THERAPY
     Dosage: 1 TOTAL
     Route: 042
     Dates: start: 20190429
  5. XYLOCAINE WITH ADRENALINE (EPINEPHRINE) [Suspect]
     Active Substance: EPINEPHRINE BITARTRATE\LIDOCAINE HYDROCHLORIDE
     Indication: ADJUVANT THERAPY
     Dosage: 50 MG, TOTAL
     Route: 042
     Dates: start: 20190429
  6. RINGER LACTATE [SODIUM LACTATE] [Concomitant]
     Indication: PRODUCT USED FOR UNKNOWN INDICATION
     Dosage: UNK
  7. ATRACURIUM HOSPIRA [Suspect]
     Active Substance: ATRACURIUM BESYLATE
     Indication: ADJUVANT THERAPY
     Dosage: 40 MILLIGRAM, TOTAL
     Route: 042
     Dates: start: 20190429
  8. CELOCURINE [SUXAMETHONIUM IODIDE] [Suspect]
     Active Substance: SUCCINYLCHOLINE IODIDE
     Indication: ADJUVANT THERAPY
     Dosage: 100 MILLIGRAM, TOTAL
     Route: 042
     Dates: start: 20190429

REACTIONS (2)
  - Peripheral ischaemia [Recovered/Resolved]
  - Anaphylactic shock [Recovered/Resolved]

NARRATIVE: CASE EVENT DATE: 20190429
